FAERS Safety Report 6759517-7 (Version None)
Quarter: 2010Q2

REPORT INFORMATION
  Report Type: 
  Country: None (occurrence: None)
  Receive Date: 20100603
  Receipt Date: 20100602
  Transmission Date: 20101027
  Serious: Yes (Other)
  Sender: FDA-Public Use
  Company Number: LEO-2010-00420

PATIENT
  Age: 82 Year
  Sex: Female

DRUGS (5)
  1. INNOHEP [Suspect]
     Indication: ATRIAL FIBRILLATION
     Dosage: 0.45 ML (0.45 ML, 1 IN 1 D)
     Dates: start: 20091101, end: 20091130
  2. ALDACTONE [Concomitant]
  3. DIGOXIN [Concomitant]
  4. OMEPRAZOLE [Concomitant]
  5. PARACETAMOL (PARACETAMOL [Concomitant]

REACTIONS (1)
  - HEPARIN-INDUCED THROMBOCYTOPENIA [None]
